FAERS Safety Report 7125046 (Version 8)
Quarter: 2013Q3

REPORT INFORMATION
  Report Type: Report from Study
  Country: JP (occurrence: JP)
  Receive Date: 20090922
  Receipt Date: 20130904
  Transmission Date: 20140515
  Serious: Yes (Death, Other)
  Sender: FDA-Public Use
  Company Number: JP-ABBOTT-09P-087-0593895-00

PATIENT
  Age: 71 Year
  Sex: Female
  Weight: 39 kg

DRUGS (11)
  1. HUMIRA 40 MG/ 0.8 ML PRE-FILLED SYRINGE [Suspect]
     Indication: RHEUMATOID ARTHRITIS
     Route: 058
     Dates: start: 20080818, end: 20090706
  2. PREDNISOLONE [Suspect]
     Indication: RHEUMATOID ARTHRITIS
     Dosage: 2.5MG DAILY
     Route: 048
     Dates: end: 200907
  3. PREDNISOLONE [Suspect]
     Indication: LIVER DISORDER
     Dosage: 5MG DAILY
     Route: 048
     Dates: start: 200907
  4. METHOTREXATE [Suspect]
     Indication: RHEUMATOID ARTHRITIS
     Route: 048
     Dates: start: 20090706
  5. BROTIZOLAM [Concomitant]
     Indication: INSOMNIA
     Route: 048
     Dates: start: 20090706
  6. BROTIZOLAM [Concomitant]
     Indication: PROPHYLAXIS
  7. TEPRENONE [Concomitant]
     Indication: GASTRITIS PROPHYLAXIS
     Dates: start: 20090706
  8. FAMOTIDINE [Concomitant]
     Indication: GASTRITIS PROPHYLAXIS
     Route: 048
     Dates: start: 20090706
  9. FOLIC ACID [Concomitant]
     Indication: PROPHYLAXIS
     Route: 048
     Dates: start: 20090706
  10. FOLIC ACID [Concomitant]
     Indication: FOLATE DEFICIENCY
  11. ALFACALCIDOL [Concomitant]
     Indication: OSTEOPOROSIS PROPHYLAXIS
     Route: 048
     Dates: start: 20090706

REACTIONS (13)
  - Pulmonary congestion [Unknown]
  - Coma [Unknown]
  - Hepatic failure [Unknown]
  - Renal failure [Unknown]
  - Hepatitis fulminant [Fatal]
  - Hepatitis B [Fatal]
  - Sepsis [Fatal]
  - Delirium [Unknown]
  - Decreased appetite [Recovered/Resolved]
  - Fatigue [Recovered/Resolved]
  - Malaise [Unknown]
  - Atrial fibrillation [Unknown]
  - Tachycardia [Unknown]
